FAERS Safety Report 10505065 (Version 1)
Quarter: 2014Q3

REPORT INFORMATION
  Report Type: Spontaneous
  Country: US (occurrence: None)
  Receive Date: 20140915
  Receipt Date: 20140915
  Transmission Date: 20150326
  Serious: Yes (Other)
  Sender: FDA-Public Use
  Company Number: PHEH2013US021042

PATIENT
  Age: 58 Year
  Sex: Female

DRUGS (2)
  1. DIOVAN [Suspect]
     Active Substance: VALSARTAN
  2. COZAAR [Suspect]
     Active Substance: LOSARTAN POTASSIUM

REACTIONS (1)
  - Blood pressure increased [None]
